FAERS Safety Report 9902892 (Version 1)
Quarter: 2014Q1

REPORT INFORMATION
  Report Type: Spontaneous
  Country: US (occurrence: US)
  Receive Date: 20140217
  Receipt Date: 20140217
  Transmission Date: 20141002
  Serious: No
  Sender: FDA-Public Use
  Company Number: US-009507513-1402USA007472

PATIENT
  Age: 58 Year
  Sex: Female

DRUGS (1)
  1. CORICIDIN HBP COLD AND FLU [Suspect]
     Indication: PRODUCT USED FOR UNKNOWN INDICATION
     Dosage: UNK UNK, HS
     Route: 048

REACTIONS (4)
  - Fatigue [Unknown]
  - Psychomotor hyperactivity [Unknown]
  - Disturbance in attention [Unknown]
  - Unevaluable event [Unknown]
